FAERS Safety Report 18437032 (Version 1)
Quarter: 2020Q4

REPORT INFORMATION
  Report Type: Report from Study
  Country: US (occurrence: US)
  Receive Date: 20201028
  Receipt Date: 20201028
  Transmission Date: 20210114
  Serious: Yes (Hospitalization)
  Sender: FDA-Public Use
  Company Number: US-EISAI MEDICAL RESEARCH-EC-2020-082733

PATIENT
  Age: 71 Year
  Sex: Female
  Weight: 95.3 kg

DRUGS (19)
  1. DICYCLOMINE HCL [Concomitant]
     Active Substance: DICYCLOMINE HYDROCHLORIDE
     Dosage: 100%
  2. AMLODIPINE [Concomitant]
     Active Substance: AMLODIPINE BESYLATE
     Dosage: FREQUENCY AND DOSING NOT PROVIDED
     Dates: end: 202002
  3. ZINC. [Concomitant]
     Active Substance: ZINC
  4. LOSARTAN POTASSIUM. [Concomitant]
     Active Substance: LOSARTAN POTASSIUM
  5. LENVIMA [Suspect]
     Active Substance: LENVATINIB
     Route: 048
     Dates: start: 2020, end: 2020
  6. LOVASTATIN. [Concomitant]
     Active Substance: LOVASTATIN
  7. METOPROLOL SUCCINATE. [Concomitant]
     Active Substance: METOPROLOL SUCCINATE
  8. HYDRALAZINE HCL [Concomitant]
     Active Substance: HYDRALAZINE HYDROCHLORIDE
  9. LENVIMA [Suspect]
     Active Substance: LENVATINIB
     Route: 048
     Dates: start: 2020
  10. VITAMIN D3 [Concomitant]
     Active Substance: CHOLECALCIFEROL
  11. IRBESARTAN. [Concomitant]
     Active Substance: IRBESARTAN
  12. KEYTRUDA [Concomitant]
     Active Substance: PEMBROLIZUMAB
  13. LENVIMA [Suspect]
     Active Substance: LENVATINIB
     Indication: ENDOMETRIAL NEOPLASM
     Dosage: MISSED 1 DOSE
     Route: 048
     Dates: start: 20191125, end: 2020
  14. IRON [Concomitant]
     Active Substance: IRON
  15. NATTOPINE [Concomitant]
  16. POTASSIUM [Concomitant]
     Active Substance: POTASSIUM
  17. DULCOLAX NOS [Concomitant]
     Active Substance: BISACODYL OR DOCUSATE SODIUM
  18. ELIQUIS [Concomitant]
     Active Substance: APIXABAN
  19. LISINOPRIL. [Concomitant]
     Active Substance: LISINOPRIL

REACTIONS (2)
  - Hypertension [Unknown]
  - Nephrolithiasis [Unknown]

NARRATIVE: CASE EVENT DATE: 2019
